FAERS Safety Report 7707196-4 (Version None)
Quarter: 2011Q3

REPORT INFORMATION
  Report Type: 
  Country: None (occurrence: None)
  Receive Date: 20110824
  Receipt Date: 20110809
  Transmission Date: 20111222
  Serious: Yes (Other)
  Sender: FDA-Public Use
  Company Number: PHHO2011US06170

PATIENT
  Age: 71 Year
  Sex: Female
  Weight: 67 kg

DRUGS (14)
  1. SIMAVASTATIN [Concomitant]
  2. LORAZEPAM [Concomitant]
  3. NAPROXEN (ALEVE) [Concomitant]
  4. VITAMIN D [Concomitant]
  5. TRIAMCINOLONE [Concomitant]
  6. DIOVAN [Suspect]
     Indication: HYPERTENSION
     Dosage: 160 MG, QD
     Route: 048
     Dates: start: 20110207, end: 20110314
  7. ALISKIREN [Suspect]
     Indication: HYPERTENSION
     Dosage: 300 MG, QD
     Route: 048
     Dates: start: 20100501, end: 20110314
  8. AVAPRO [Concomitant]
  9. MUCINEX [Concomitant]
  10. UBIDECARENONE [Concomitant]
  11. FOLIC ACID [Concomitant]
  12. SYNTHROID [Concomitant]
     Indication: HYPOTHYROIDISM
  13. ESTRING [Concomitant]
  14. ZYRTEC [Concomitant]

REACTIONS (1)
  - HYPONATRAEMIA [None]
